FAERS Safety Report 8367327-2 (Version None)
Quarter: 2012Q2

REPORT INFORMATION
  Report Type: 
  Country: None (occurrence: None)
  Receive Date: 20120517
  Receipt Date: 20120511
  Transmission Date: 20120825
  Serious: Yes (Hospitalization, Other)
  Sender: FDA-Public Use
  Company Number: GB-PFIZER INC-2012059166

PATIENT
  Age: 55 Year
  Sex: Female
  Weight: 146 kg

DRUGS (9)
  1. EFFEXOR [Suspect]
     Indication: DEPRESSION
     Dosage: 225 MG, UNK
  2. EFFEXOR [Suspect]
     Dosage: 3 X 75 MG CAPSULES, UNK
     Dates: start: 20120208
  3. IRBESARTAN [Concomitant]
     Indication: HYPERTENSION
     Dosage: 300 MG, UNK
     Route: 048
  4. METFORMIN [Concomitant]
     Indication: OBESITY
     Dosage: 500 MG, 2X/DAY
     Route: 048
  5. EFFEXOR [Suspect]
     Dosage: 1X225MG TABLET PLUS 1X 75MG CAPSULE, UNK
     Route: 048
     Dates: start: 20120109
  6. IBUPROFEN [Concomitant]
     Indication: HEADACHE
  7. BENDROFLUMETHIAZIDE [Concomitant]
     Indication: HYPERTENSION
     Dosage: 2.5 MG, UNK
     Route: 048
  8. FLUOXETINE [Suspect]
     Indication: DEPRESSION
     Dosage: 20 MG, UNK
     Route: 048
     Dates: end: 20120301
  9. IBUPROFEN [Concomitant]
     Indication: PAIN
     Dosage: 400 MG, AS NEEDED

REACTIONS (2)
  - MENORRHAGIA [None]
  - HYPERPLASIA [None]
